FAERS Safety Report 6315319-7 (Version None)
Quarter: 2009Q3

REPORT INFORMATION
  Report Type: 
  Country: None (occurrence: None)
  Receive Date: 20090819
  Receipt Date: 20090814
  Transmission Date: 20100115
  Serious: Yes (Hospitalization)
  Sender: FDA-Public Use
  Company Number: US-AVENTIS-200917277US

PATIENT
  Sex: Male

DRUGS (2)
  1. LANTUS [Suspect]
     Dosage: DOSE: UNK
     Route: 058
     Dates: start: 20090301
  2. OPTICLIK (INSULIN INJECTION PEN) [Suspect]
     Dates: start: 20090301

REACTIONS (2)
  - INFECTION [None]
  - MYOCARDIAL INFARCTION [None]
